FAERS Safety Report 11455221 (Version 1)
Quarter: 2015Q3

REPORT INFORMATION
  Report Type: Spontaneous
  Country: US (occurrence: US)
  Receive Date: 20150903
  Receipt Date: 20150903
  Transmission Date: 20151125
  Serious: No
  Sender: FDA-Public Use
  Company Number: US-APOTEX-2015AP007913

PATIENT
  Age: 8 Year
  Sex: Male

DRUGS (17)
  1. ZONISAMIDE. [Suspect]
     Active Substance: ZONISAMIDE
     Indication: PETIT MAL EPILEPSY
  2. RUFINAMIDE [Suspect]
     Active Substance: RUFINAMIDE
     Indication: PETIT MAL EPILEPSY
  3. CLONAZEPAM TABLETS USP [Suspect]
     Active Substance: CLONAZEPAM
     Indication: GENERALISED TONIC-CLONIC SEIZURE
     Dosage: 1.5 MG, BID
     Route: 065
  4. CLOBAZAM [Concomitant]
     Active Substance: CLOBAZAM
     Indication: TONIC CONVULSION
  5. CLONAZEPAM TABLETS USP [Suspect]
     Active Substance: CLONAZEPAM
     Indication: PETIT MAL EPILEPSY
  6. ZONISAMIDE. [Suspect]
     Active Substance: ZONISAMIDE
     Indication: TONIC CONVULSION
  7. RUFINAMIDE [Suspect]
     Active Substance: RUFINAMIDE
     Indication: MYOCLONIC EPILEPSY
     Dosage: 50 MG/KG, (CONCENTRATION 103 MCG/ML) DAILY
     Route: 065
  8. RUFINAMIDE [Suspect]
     Active Substance: RUFINAMIDE
     Indication: GENERALISED TONIC-CLONIC SEIZURE
  9. ZONISAMIDE. [Suspect]
     Active Substance: ZONISAMIDE
     Indication: MYOCLONIC EPILEPSY
  10. CLOBAZAM [Concomitant]
     Active Substance: CLOBAZAM
     Indication: PETIT MAL EPILEPSY
     Dosage: 5MG DAILY INCREASED TO 10 MG BID OVER 4 WEEKS
     Route: 065
  11. CLOBAZAM [Concomitant]
     Active Substance: CLOBAZAM
     Indication: MYOCLONIC EPILEPSY
     Dosage: TITRATED TO 20 MG, BID
     Route: 065
  12. ZONISAMIDE. [Suspect]
     Active Substance: ZONISAMIDE
     Indication: GENERALISED TONIC-CLONIC SEIZURE
     Dosage: 10 MG/KG, DAILY
     Route: 065
  13. RUFINAMIDE [Suspect]
     Active Substance: RUFINAMIDE
     Indication: TONIC CONVULSION
  14. CLONAZEPAM TABLETS USP [Suspect]
     Active Substance: CLONAZEPAM
     Indication: TONIC CONVULSION
  15. CLONAZEPAM TABLETS USP [Suspect]
     Active Substance: CLONAZEPAM
     Indication: MYOCLONIC EPILEPSY
  16. VALPROIC ACID ORAL SOLUTION USP [Suspect]
     Active Substance: VALPROIC ACID
     Dosage: 42 MG/KG, DAILY (CONCENTRATION 103 MCG/ML)
     Route: 065
  17. CLOBAZAM [Concomitant]
     Active Substance: CLOBAZAM
     Indication: GENERALISED TONIC-CLONIC SEIZURE
     Dosage: 5 MG, DAILY
     Route: 065

REACTIONS (2)
  - Somnolence [Recovered/Resolved]
  - Treatment failure [Unknown]
